FAERS Safety Report 16886819 (Version 1)
Quarter: 2019Q4

REPORT INFORMATION
  Report Type: Spontaneous
  Country: FR (occurrence: FR)
  Receive Date: 20191004
  Receipt Date: 20191004
  Transmission Date: 20200122
  Serious: Yes (Disabling)
  Sender: FDA-Public Use
  Company Number: FR-CELGENEUS-FRA-20191000011

PATIENT
  Age: 76 Year
  Sex: Male
  Weight: 55 kg

DRUGS (2)
  1. POMALIDOMIDE [Suspect]
     Active Substance: POMALIDOMIDE
     Indication: PLASMA CELL MYELOMA
     Dosage: 4 MILLIGRAM
     Route: 048
  2. POMALIDOMIDE [Suspect]
     Active Substance: POMALIDOMIDE
     Dosage: 2 MILLIGRAM
     Route: 048

REACTIONS (1)
  - Psychomotor retardation [Recovered/Resolved with Sequelae]

NARRATIVE: CASE EVENT DATE: 20190730
